FAERS Safety Report 9899493 (Version 1)
Quarter: 2014Q1

REPORT INFORMATION
  Report Type: Spontaneous
  Country: US (occurrence: US)
  Receive Date: 20140214
  Receipt Date: 20140214
  Transmission Date: 20141002
  Serious: Yes (Hospitalization)
  Sender: FDA-Public Use
  Company Number: 2014SP000228

PATIENT
  Age: 19 Year
  Sex: Female
  Weight: 90 kg

DRUGS (3)
  1. LATUDA [Suspect]
     Indication: AFFECTIVE DISORDER
     Route: 048
     Dates: start: 20140110, end: 20140126
  2. LATUDA [Suspect]
     Indication: AFFECTIVE DISORDER
     Route: 048
     Dates: start: 201310, end: 20140110
  3. SEROQUEL [Concomitant]
     Route: 048

REACTIONS (2)
  - Neuralgia [Not Recovered/Not Resolved]
  - Fall [Unknown]
